FAERS Safety Report 18154766 (Version 10)
Quarter: 2021Q1

REPORT INFORMATION
  Report Type: Spontaneous
  Country: CA (occurrence: CA)
  Receive Date: 20200817
  Receipt Date: 20210312
  Transmission Date: 20210419
  Serious: Yes (Other)
  Sender: FDA-Public Use
  Company Number: CA-CELLTRION INC.-2020CA023777

PATIENT

DRUGS (8)
  1. INFLECTRA [Suspect]
     Active Substance: INFLIXIMAB-DYYB
     Dosage: 5 MG/KG (ROUND UP TO NEAREST HUNDRED) EVERY 6 WEEKS
     Route: 042
     Dates: start: 20210120
  2. INFLECTRA [Suspect]
     Active Substance: INFLIXIMAB-DYYB
     Dosage: 5 MG/KG (ROUNDED TO NEAREST VIAL) WEEK 0, 2, 6 AND THEN EVERY 8 WEEKS (RE?INDUCTION)
     Route: 042
     Dates: start: 20200915, end: 20200915
  3. INFLECTRA [Suspect]
     Active Substance: INFLIXIMAB-DYYB
     Indication: CROHN^S DISEASE
     Dosage: 400 MG WEEKS 0, 2, 6, THEN EVERY 8 WEEKS (Q 0 WEEK DOSE)
     Route: 042
     Dates: start: 20200610, end: 20200610
  4. INFLECTRA [Suspect]
     Active Substance: INFLIXIMAB-DYYB
     Dosage: 400 MG WEEKS 0, 2, 6, THEN EVERY 8 WEEKS (Q 2 WEEK DOSE)
     Route: 042
     Dates: start: 20200626, end: 20200626
  5. INFLECTRA [Suspect]
     Active Substance: INFLIXIMAB-DYYB
     Dosage: 400 MG WEEKS 0, 2, 6, THEN EVERY 8 WEEKS (Q 6 WEEK DOSE)
     Route: 042
     Dates: start: 20200724, end: 20200724
  6. INFLECTRA [Suspect]
     Active Substance: INFLIXIMAB-DYYB
     Dosage: 5 MG/KG (ROUND UP TO NEAREST HUNDRED) EVERY 6 WEEKS
     Route: 042
     Dates: start: 20201026
  7. INFLECTRA [Suspect]
     Active Substance: INFLIXIMAB-DYYB
     Dosage: 5 MG/KG (ROUND UP TO NEAREST HUNDRED) EVERY 6 WEEKS
     Route: 042
     Dates: start: 20201208
  8. INFLECTRA [Suspect]
     Active Substance: INFLIXIMAB-DYYB
     Dosage: 5 MG/KG (ROUND UP TO NEAREST HUNDRED) EVERY 6 WEEKS
     Route: 042
     Dates: start: 20210303

REACTIONS (10)
  - Intentional product use issue [Unknown]
  - Constipation [Not Recovered/Not Resolved]
  - Bradycardia [Unknown]
  - Abdominal distension [Recovered/Resolved]
  - Pain [Unknown]
  - Abdominal pain [Unknown]
  - Condition aggravated [Unknown]
  - Vomiting [Not Recovered/Not Resolved]
  - Abortion spontaneous [Unknown]
  - Off label use [Unknown]

NARRATIVE: CASE EVENT DATE: 202006
